FAERS Safety Report 7413582-2 (Version None)
Quarter: 2011Q2

REPORT INFORMATION
  Report Type: 
  Country: None (occurrence: None)
  Receive Date: 20110405
  Receipt Date: 20110325
  Transmission Date: 20111010
  Serious: Yes (Hospitalization, Other)
  Sender: FDA-Public Use
  Company Number: ACO_22659_2011

PATIENT
  Age: 70 Year
  Sex: Female

DRUGS (9)
  1. LISINOPRIL [Concomitant]
  2. METOCLOPRAM (METOCLOPRAMIDE HYDROCHLORIDE) [Concomitant]
  3. SPIRONOLACTONE W/HYDROCHLOROTHIAZIDE (HYDROCHLOROTHIAZIDE, SPIRONOLACT [Concomitant]
  4. LYRICA [Concomitant]
  5. OMEPRAZOLE [Concomitant]
  6. LIPITOR [Concomitant]
  7. AMPYRA [Suspect]
     Indication: GAIT DISTURBANCE
     Dosage: 10 MG, BID, ORAL
     Route: 048
     Dates: start: 20101201, end: 20110201
  8. LEVOTHYROXINE (LEVOTHYROXINE) [Concomitant]
  9. OXYBUTYNIN [Concomitant]

REACTIONS (5)
  - CONVULSION [None]
  - RESPIRATORY DISORDER [None]
  - EYE MOVEMENT DISORDER [None]
  - HYPERVENTILATION [None]
  - DISORIENTATION [None]
